FAERS Safety Report 10639783 (Version 1)
Quarter: 2014Q4

REPORT INFORMATION
  Report Type: Spontaneous
  Country: US (occurrence: None)
  Receive Date: 20141205
  Receipt Date: 20141205
  Transmission Date: 20150529
  Serious: Yes (Hospitalization, Other)
  Sender: FDA-Public Use
  Company Number: None

PATIENT
  Age: 19 Year
  Sex: Female
  Weight: 67.13 kg

DRUGS (1)
  1. MIRENA [Suspect]
     Active Substance: LEVONORGESTREL
     Indication: CONTRACEPTION

REACTIONS (8)
  - Heart rate increased [None]
  - Nervousness [None]
  - Inflammation [None]
  - Chest pain [None]
  - Anxiety [None]
  - Cardiac disorder [None]
  - Dyspnoea [None]
  - Dizziness [None]
